FAERS Safety Report 10194220 (Version 1)
Quarter: 2014Q2

REPORT INFORMATION
  Report Type: Spontaneous
  Country: US (occurrence: US)
  Receive Date: 20140525
  Receipt Date: 20140525
  Transmission Date: 20141212
  Serious: No
  Sender: FDA-Public Use
  Company Number: US-009507513-1405USA011684

PATIENT
  Age: 25 Year
  Sex: Female

DRUGS (1)
  1. NUVARING [Suspect]
     Dosage: DOSE/FREQUENCY-3WEEKS IN /1 WEEK OUT 1 RING
     Route: 067
     Dates: start: 2007

REACTIONS (1)
  - Inappropriate schedule of drug administration [Unknown]
